FAERS Safety Report 8200961-9 (Version None)
Quarter: 2012Q1

REPORT INFORMATION
  Report Type: 
  Country: None (occurrence: None)
  Receive Date: 20120227
  Receipt Date: 20120215
  Transmission Date: 20120608
  Serious: Yes (Death)
  Sender: FDA-Public Use
  Company Number: THYM-1001233

PATIENT
  Age: 48 Year
  Sex: Female
  Weight: 41 kg

DRUGS (8)
  1. MYCOPHENOLATE MOFETIL [Concomitant]
  2. FLUDARABINE PHOSPHATE [Concomitant]
  3. MELPHALAN HYDROCHLORIDE [Concomitant]
  4. METHYLPREDNISONONE [Concomitant]
  5. CYTARABINE [Concomitant]
  6. THYMOGLOBULIN [Suspect]
     Indication: BONE MARROW CONDITIONING REGIMEN
     Dosage: 40 MG, QD, INTRAVENOUS
     Route: 042
     Dates: start: 20090212, end: 20090215
  7. CYCLOSPORINE [Concomitant]
  8. TACROLIMUS [Concomitant]

REACTIONS (10)
  - BLOOD BILIRUBIN INCREASED [None]
  - ACUTE GRAFT VERSUS HOST DISEASE IN INTESTINE [None]
  - STEM CELL TRANSPLANT [None]
  - SURGICAL PROCEDURE REPEATED [None]
  - THROMBOTIC MICROANGIOPATHY [None]
  - MULTI-ORGAN FAILURE [None]
  - GRAFT VERSUS HOST DISEASE [None]
  - DIARRHOEA [None]
  - ACUTE GRAFT VERSUS HOST DISEASE IN LIVER [None]
  - ACUTE MYELOID LEUKAEMIA RECURRENT [None]
